FAERS Safety Report 12702914 (Version 1)
Quarter: 2016Q3

REPORT INFORMATION
  Report Type: Spontaneous
  Country: US (occurrence: US)
  Receive Date: 20160831
  Receipt Date: 20160831
  Transmission Date: 20161109
  Serious: Yes (Hospitalization, Disabling, Other)
  Sender: FDA-Public Use
  Company Number: US-009507513-1003USA01796

PATIENT
  Sex: Female
  Weight: 66.22 kg

DRUGS (7)
  1. FOSAMAX [Suspect]
     Active Substance: ALENDRONATE SODIUM
     Indication: OSTEOPOROSIS
     Dosage: 70 MG, QW
     Route: 048
     Dates: start: 2002, end: 20091028
  2. FOSAMAX [Suspect]
     Active Substance: ALENDRONATE SODIUM
     Indication: OSTEOPENIA
     Route: 048
  3. FOSAMAX [Suspect]
     Active Substance: ALENDRONATE SODIUM
     Indication: OSTEOPENIA
  4. ATIVAN [Concomitant]
     Active Substance: LORAZEPAM
     Indication: SLEEP DISORDER
     Dosage: UNK
     Route: 048
     Dates: start: 2000
  5. CORTICOSTEROIDS (UNSPECIFIED) [Concomitant]
     Active Substance: UNSPECIFIED INGREDIENT
     Indication: RHEUMATOID ARTHRITIS
     Route: 048
  6. FOSAMAX [Suspect]
     Active Substance: ALENDRONATE SODIUM
     Indication: OSTEOPOROSIS
  7. PRILOSEC [Concomitant]
     Active Substance: OMEPRAZOLE MAGNESIUM
     Indication: GASTROOESOPHAGEAL REFLUX DISEASE
     Route: 065

REACTIONS (102)
  - Low turnover osteopathy [Unknown]
  - Tooth disorder [Unknown]
  - Anxiety [Unknown]
  - Neuropathy peripheral [Not Recovered/Not Resolved]
  - Carpal tunnel syndrome [Unknown]
  - Fall [Unknown]
  - Vasculitis [Unknown]
  - Drug hypersensitivity [Unknown]
  - Infection [Unknown]
  - Tooth disorder [Unknown]
  - Nodule [Unknown]
  - Diarrhoea [Unknown]
  - Colitis microscopic [Unknown]
  - Osteonecrosis of jaw [Unknown]
  - Tooth fracture [Unknown]
  - Depression [Not Recovered/Not Resolved]
  - Quality of life decreased [Unknown]
  - Nephropathy [Unknown]
  - Arthritis [Unknown]
  - Nystagmus [Unknown]
  - Large intestine polyp [Unknown]
  - Insomnia [Unknown]
  - Middle insomnia [Unknown]
  - Balance disorder [Unknown]
  - Cutis laxa [Unknown]
  - Hypercholesterolaemia [Unknown]
  - Mental status changes [Unknown]
  - Foot fracture [Unknown]
  - Radiculopathy [Unknown]
  - Back pain [Unknown]
  - Fatigue [Not Recovered/Not Resolved]
  - Fall [Unknown]
  - Peripheral ischaemia [Not Recovered/Not Resolved]
  - Axonal neuropathy [Unknown]
  - Collagen-vascular disease [Unknown]
  - Drug hypersensitivity [Unknown]
  - Uterine polyp [Unknown]
  - Optic nerve disorder [Unknown]
  - Pain in extremity [Unknown]
  - Respiratory tract infection [Unknown]
  - Colitis microscopic [Unknown]
  - Musculoskeletal discomfort [Unknown]
  - Spinal osteoarthritis [Unknown]
  - Sinusitis [Unknown]
  - Ligament sprain [Unknown]
  - Syncope [Unknown]
  - Gastroenteritis [Unknown]
  - Nausea [Unknown]
  - Fall [Unknown]
  - Femur fracture [Unknown]
  - Blindness unilateral [Unknown]
  - Stomatitis [Unknown]
  - Skin fragility [Unknown]
  - Tooth disorder [Recovered/Resolved]
  - Squamous cell carcinoma of skin [Unknown]
  - Presumed ocular histoplasmosis syndrome [Unknown]
  - Purpura [Unknown]
  - Laceration [Unknown]
  - Presumed ocular histoplasmosis syndrome [Unknown]
  - Tooth abscess [Unknown]
  - Hyperglycaemia [Unknown]
  - Pyrexia [Unknown]
  - Adverse drug reaction [Unknown]
  - Systemic lupus erythematosus [Unknown]
  - Blister [Unknown]
  - Rheumatoid arthritis [Unknown]
  - Raynaud^s phenomenon [Unknown]
  - Gastritis [Unknown]
  - Endometrial hyperplasia [Unknown]
  - Cataract cortical [Unknown]
  - Anaemia [Recovered/Resolved]
  - Chest pain [Unknown]
  - Osteoarthritis [Unknown]
  - Nausea [Unknown]
  - Pneumonia [Unknown]
  - Biopsy muscle [Unknown]
  - Diarrhoea [Unknown]
  - Constipation [Unknown]
  - Tooth abscess [Recovered/Resolved]
  - Sepsis [Unknown]
  - Depression [Unknown]
  - Blood pressure increased [Unknown]
  - Osteomyelitis [Unknown]
  - Femur fracture [Unknown]
  - Femur fracture [Recovering/Resolving]
  - Blood cholesterol increased [Not Recovered/Not Resolved]
  - Systemic lupus erythematosus [Unknown]
  - Musculoskeletal pain [Unknown]
  - Nocturia [Unknown]
  - Temporomandibular joint syndrome [Unknown]
  - Hypertension [Unknown]
  - Biopsy peripheral nerve [Unknown]
  - Mammogram abnormal [Unknown]
  - Weight decreased [Unknown]
  - Spinal osteoarthritis [Unknown]
  - Fall [Unknown]
  - Cataract nuclear [Unknown]
  - Vitreous detachment [Unknown]
  - Fall [Unknown]
  - Lower limb fracture [Unknown]
  - Drug hypersensitivity [Unknown]
  - Exposed bone in jaw [Unknown]

NARRATIVE: CASE EVENT DATE: 2002
